FAERS Safety Report 9478418 (Version 1)
Quarter: 2013Q3

REPORT INFORMATION
  Report Type: Spontaneous
  Country: US (occurrence: None)
  Receive Date: 20130822
  Receipt Date: 20130822
  Transmission Date: 20140515
  Serious: Yes (Hospitalization)
  Sender: FDA-Public Use
  Company Number: B0915923A

PATIENT
  Age: 48 Year
  Sex: Male

DRUGS (2)
  1. LAMOTRIGINE (FORMULATION UNKNOWN) (GENERIC) (LAMOTRIGINE) [Suspect]
     Indication: PRODUCT USED FOR UNKNOWN INDICATION
     Route: 048
  2. TOPIRAMATE [Concomitant]

REACTIONS (5)
  - Toxicity to various agents [None]
  - Confusional state [None]
  - Ataxia [None]
  - Muscular weakness [None]
  - Incorrect dose administered [None]
